FAERS Safety Report 8163026-0 (Version None)
Quarter: 2012Q1

REPORT INFORMATION
  Report Type: 
  Country: None (occurrence: None)
  Receive Date: 20120224
  Receipt Date: 20120221
  Transmission Date: 20120608
  Serious: Yes (Life-Threatening, Hospitalization, Other)
  Sender: FDA-Public Use
  Company Number: US-BAYER-2011-066488

PATIENT
  Age: 38 Year
  Sex: Female
  Weight: 76.644 kg

DRUGS (9)
  1. SOMA [Concomitant]
     Route: 048
  2. NORCO [Concomitant]
     Route: 048
  3. YAZ [Suspect]
     Dosage: UNK
     Dates: start: 20030101
  4. AMBIEN [Concomitant]
     Route: 048
  5. ZOSTRIX [Concomitant]
     Indication: MUSCULOSKELETAL PAIN
     Dosage: UNK
     Route: 061
     Dates: start: 20090811
  6. YAZ [Suspect]
     Dosage: UNK
     Dates: start: 20080801, end: 20090801
  7. HYDROCODONE BITARTRATE AND ACETAMINOPHEN [Concomitant]
     Dosage: UNK
     Route: 048
     Dates: start: 20090707
  8. VICODIN [Concomitant]
  9. NAPROXEN [Concomitant]

REACTIONS (8)
  - THROMBOSIS [None]
  - PAIN [None]
  - GENERAL PHYSICAL HEALTH DETERIORATION [None]
  - PORTAL VEIN THROMBOSIS [None]
  - EMOTIONAL DISTRESS [None]
  - COLLATERAL CIRCULATION [None]
  - INJURY [None]
  - SPLENIC VEIN THROMBOSIS [None]
